FAERS Safety Report 5768280-8 (Version None)
Quarter: 2008Q2

REPORT INFORMATION
  Report Type: 
  Country: None (occurrence: None)
  Receive Date: 20080612
  Receipt Date: 20080417
  Transmission Date: 20081010
  Serious: No
  Sender: FDA-Public Use
  Company Number: PR-ABBOTT-08P-131-0448606-00

PATIENT
  Age: 20 Year
  Sex: Female

DRUGS (2)
  1. HUMIRA [Suspect]
     Indication: CROHN'S DISEASE
     Route: 058
  2. MESALAMINE [Concomitant]
     Indication: CROHN'S DISEASE
     Route: 048

REACTIONS (3)
  - INFLAMMATION [None]
  - PAIN OF SKIN [None]
  - PRURITUS [None]
